FAERS Safety Report 9913614 (Version 1)
Quarter: 2014Q1

REPORT INFORMATION
  Report Type: Spontaneous
  Country: US (occurrence: None)
  Receive Date: 20140214
  Receipt Date: 20140214
  Transmission Date: 20141002
  Serious: Yes (Death)
  Sender: FDA-Public Use
  Company Number: AUR-APL-2014-01251

PATIENT
  Age: 62 Year
  Sex: Male

DRUGS (2)
  1. SERTRALINE (SERTRALINE) [Suspect]
  2. PARACETAMOL/DEXTROMETHORPHAN/DOXYLAMINE [Suspect]
     Route: 048

REACTIONS (1)
  - Drug abuse [None]
